FAERS Safety Report 13288731 (Version 3)
Quarter: 2019Q3

REPORT INFORMATION
  Report Type: Report from Study
  Country: None (occurrence: CA)
  Receive Date: 20170302
  Receipt Date: 20190902
  Transmission Date: 20191004
  Serious: Yes (Other)
  Sender: FDA-Public Use
  Company Number: CA-ABBVIE-17P-028-1891951-00

PATIENT
  Age: 57 Year
  Sex: Female

DRUGS (4)
  1. HUMIRA [Suspect]
     Active Substance: ADALIMUMAB
     Indication: CROHN^S DISEASE
     Route: 058
  2. A.S.A. [Concomitant]
     Indication: FISTULA
     Route: 048
  3. HUMIRA [Suspect]
     Active Substance: ADALIMUMAB
     Route: 058
     Dates: start: 20170301
  4. CORTISONE [Concomitant]
     Active Substance: CORTISONE
     Indication: FISTULA
     Route: 048

REACTIONS (9)
  - Impaired work ability [Unknown]
  - Sacroiliitis [Not Recovered/Not Resolved]
  - Wound dehiscence [Unknown]
  - Decreased appetite [Not Recovered/Not Resolved]
  - Crohn^s disease [Not Recovered/Not Resolved]
  - Intracranial aneurysm [Recovered/Resolved]
  - Head injury [Recovered/Resolved]
  - Therapeutic response shortened [Unknown]
  - Impaired quality of life [Unknown]

NARRATIVE: CASE EVENT DATE: 2014
